FAERS Safety Report 21387024 (Version 3)
Quarter: 2022Q4

REPORT INFORMATION
  Report Type: Spontaneous
  Country: GB (occurrence: GB)
  Receive Date: 20220928
  Receipt Date: 20221107
  Transmission Date: 20230113
  Serious: Yes (Hospitalization)
  Sender: FDA-Public Use
  Company Number: GB-NOVOPROD-961725

PATIENT
  Age: 4 Year
  Sex: Female
  Weight: 14.4 kg

DRUGS (1)
  1. FIASP [Suspect]
     Active Substance: INSULIN ASPART
     Indication: Type 1 diabetes mellitus
     Dosage: UNK (USED AS DIRECTED BY CONSULTANT FOR PUMP THERAPY)
     Route: 058

REACTIONS (4)
  - Urine ketone body present [Recovered/Resolved]
  - Urinary tract infection [Unknown]
  - Product quality issue [Unknown]
  - Blood glucose increased [Unknown]

NARRATIVE: CASE EVENT DATE: 20220916
